FAERS Safety Report 8256434-0 (Version None)
Quarter: 2012Q2

REPORT INFORMATION
  Report Type: 
  Country: None (occurrence: None)
  Receive Date: 20120402
  Receipt Date: 20120402
  Transmission Date: 20120825
  Serious: Yes (Hospitalization)
  Sender: FDA-Public Use
  Company Number: None

PATIENT
  Age: 63 Year
  Sex: Male
  Weight: 69.5 kg

DRUGS (2)
  1. CARBOPLATIN [Suspect]
     Indication: NON-SMALL CELL LUNG CANCER STAGE IV
     Dosage: 660 MG ONCE IV
     Route: 042
     Dates: start: 20111208, end: 20120105
  2. VINORELBINE [Suspect]
     Indication: NON-SMALL CELL LUNG CANCER STAGE IV
     Dosage: 35 MG QWEEK IV
     Route: 042
     Dates: start: 20111229, end: 20120105

REACTIONS (2)
  - WHEEZING [None]
  - FEBRILE NEUTROPENIA [None]
